FAERS Safety Report 24778133 (Version 2)
Quarter: 2025Q1

REPORT INFORMATION
  Report Type: Spontaneous
  Country: US (occurrence: US)
  Receive Date: 20241226
  Receipt Date: 20250130
  Transmission Date: 20250409
  Serious: No
  Sender: PFIZER
  Company Number: US-PFIZER INC-202400312390

PATIENT
  Age: 62 Year
  Sex: Female

DRUGS (2)
  1. TUKYSA [Suspect]
     Active Substance: TUCATINIB
     Dosage: TWO 150MG TABLETS, TWICE DAILY
     Route: 048
     Dates: start: 202409, end: 202501
  2. XELODA [Suspect]
     Active Substance: CAPECITABINE

REACTIONS (3)
  - Neoplasm progression [Unknown]
  - Off label use [Unknown]
  - Product use issue [Unknown]
